FAERS Safety Report 12561132 (Version 3)
Quarter: 2016Q3

REPORT INFORMATION
  Report Type: Spontaneous
  Country: US (occurrence: US)
  Receive Date: 20160715
  Receipt Date: 20160808
  Transmission Date: 20161109
  Serious: No
  Sender: FDA-Public Use
  Company Number: US-BEH-2016062918

PATIENT
  Sex: Female
  Weight: 83 kg

DRUGS (49)
  1. TUSSIONEX PENNKINETIC [Concomitant]
     Active Substance: CHLORPHENIRAMINE\HYDROCODONE
  2. HYOSCYAMINE SULF [Concomitant]
  3. OXYCONTIN [Concomitant]
     Active Substance: OXYCODONE HYDROCHLORIDE
  4. NEURONTIN [Concomitant]
     Active Substance: GABAPENTIN
  5. ACYCLOVIR. [Concomitant]
     Active Substance: ACYCLOVIR
  6. THEOPHYLLINE [Concomitant]
     Active Substance: THEOPHYLLINE ANHYDROUS
  7. HIZENTRA [Suspect]
     Active Substance: HUMAN IMMUNOGLOBULIN G
     Indication: HYPOGAMMAGLOBULINAEMIA
     Route: 058
  8. EPIPEN [Concomitant]
     Active Substance: EPINEPHRINE
  9. ZOLPIDEM TARTRATE. [Concomitant]
     Active Substance: ZOLPIDEM TARTRATE
  10. HYDROCORTISONE. [Concomitant]
     Active Substance: HYDROCORTISONE
  11. LIDOCAINE/PRILOCAINE [Concomitant]
     Active Substance: LIDOCAINE\PRILOCAINE
  12. LIPITOR [Concomitant]
     Active Substance: ATORVASTATIN CALCIUM
  13. XANAX [Concomitant]
     Active Substance: ALPRAZOLAM
  14. MICARDIS [Concomitant]
     Active Substance: TELMISARTAN
  15. COLCRYS [Concomitant]
     Active Substance: COLCHICINE
  16. HIZENTRA [Suspect]
     Active Substance: HUMAN IMMUNOGLOBULIN G
     Indication: IMMUNODEFICIENCY COMMON VARIABLE
     Route: 058
  17. ACETAMINOPHEN. [Concomitant]
     Active Substance: ACETAMINOPHEN
  18. DIPHENHYDRAMINE. [Concomitant]
     Active Substance: DIPHENHYDRAMINE
  19. HYDRALAZINE [Concomitant]
     Active Substance: HYDRALAZINE HYDROCHLORIDE
  20. POTASSIUM CL [Concomitant]
     Active Substance: POTASSIUM CHLORIDE
  21. SOOTHE HYDRATION [Concomitant]
     Active Substance: POVIDONE
  22. TRAVATAN Z [Concomitant]
     Active Substance: TRAVOPROST
  23. NASACORT AQ [Concomitant]
     Active Substance: TRIAMCINOLONE ACETONIDE
  24. METOPROLOL SUCC [Concomitant]
     Active Substance: METOPROLOL SUCCINATE
  25. SINGULAIR [Concomitant]
     Active Substance: MONTELUKAST SODIUM
  26. BROVANA [Concomitant]
     Active Substance: ARFORMOTEROL TARTRATE
  27. ALLEGRA [Concomitant]
     Active Substance: FEXOFENADINE HYDROCHLORIDE
  28. CLONIDINE HCL [Concomitant]
     Active Substance: CLONIDINE HYDROCHLORIDE
  29. PATANOL [Concomitant]
     Active Substance: OLOPATADINE HYDROCHLORIDE
  30. TRANDOLAPRIL. [Concomitant]
     Active Substance: TRANDOLAPRIL
  31. VERAPAMIL ER [Concomitant]
     Active Substance: VERAPAMIL HYDROCHLORIDE
  32. OMEPRAZOLE. [Concomitant]
     Active Substance: OMEPRAZOLE
  33. DICYCLOMINE [Concomitant]
     Active Substance: DICYCLOMINE HYDROCHLORIDE
  34. TEKTURNA [Concomitant]
     Active Substance: ALISKIREN HEMIFUMARATE
  35. ANUSOL-HC [Concomitant]
  36. ADVAIR HFA [Concomitant]
     Active Substance: FLUTICASONE PROPIONATE\SALMETEROL XINAFOATE
  37. HIZENTRA [Suspect]
     Active Substance: HUMAN IMMUNOGLOBULIN G
     Route: 058
  38. HYDROXYZINE HCL [Concomitant]
     Active Substance: HYDROXYZINE HYDROCHLORIDE
  39. COLACE [Concomitant]
     Active Substance: DOCUSATE SODIUM
  40. LASIX [Concomitant]
     Active Substance: FUROSEMIDE
  41. NYSTATIN. [Concomitant]
     Active Substance: NYSTATIN
  42. DEXILANT [Concomitant]
     Active Substance: DEXLANSOPRAZOLE
  43. MIRALAX [Concomitant]
     Active Substance: POLYETHYLENE GLYCOL 3350
  44. LORTAB [Concomitant]
     Active Substance: ACETAMINOPHEN\HYDROCODONE BITARTRATE
  45. IRON [Concomitant]
     Active Substance: IRON
  46. BENEFIBER [Concomitant]
     Active Substance: STARCH, WHEAT
  47. LYRICA [Concomitant]
     Active Substance: PREGABALIN
  48. BUDESONIDE. [Concomitant]
     Active Substance: BUDESONIDE
  49. CULTURELLE [Concomitant]
     Active Substance: LACTOBACILLUS RHAMNOSUS

REACTIONS (1)
  - Infusion site pain [Unknown]
